FAERS Safety Report 21418088 (Version 1)
Quarter: 2022Q4

REPORT INFORMATION
  Report Type: Spontaneous
  Country: US (occurrence: None)
  Receive Date: 20221005
  Receipt Date: 20221005
  Transmission Date: 20230112
  Serious: Yes (Disabling)
  Sender: FDA-Public Use
  Company Number: None

PATIENT
  Age: 50 Year
  Sex: Female
  Weight: 117 kg

DRUGS (8)
  1. HUMIRA [Suspect]
     Active Substance: ADALIMUMAB
     Indication: Hidradenitis
     Dates: start: 20220304, end: 20220318
  2. NEXIUM [Concomitant]
     Active Substance: ESOMEPRAZOLE MAGNESIUM
  3. PROZAC [Concomitant]
     Active Substance: FLUOXETINE HYDROCHLORIDE
  4. LASIX [Concomitant]
     Active Substance: FUROSEMIDE
  5. CALCIUM [Concomitant]
     Active Substance: CALCIUM
  6. VITAMIN B-COMPLEX [Concomitant]
     Active Substance: DEXPANTHENOL\NIACINAMIDE\PYRIDOXINE HYDROCHLORIDE\RIBOFLAVIN 5^-PHOSPHATE SODIUM\THIAMINE HYDROCHLOR
  7. VITAMIN D NOS [Concomitant]
     Active Substance: VITAMIN D NOS
  8. PROBIOTICS NOS [Concomitant]
     Active Substance: PROBIOTICS NOS

REACTIONS (23)
  - Chills [None]
  - Myalgia [None]
  - Nausea [None]
  - Therapy interrupted [None]
  - Rash vesicular [None]
  - Rash pruritic [None]
  - Rash [None]
  - Blister [None]
  - Dry skin [None]
  - Skin fissures [None]
  - Skin exfoliation [None]
  - Peripheral sensory neuropathy [None]
  - Skin ulcer [None]
  - Nail pitting [None]
  - Nail bed disorder [None]
  - Therapy non-responder [None]
  - Burning sensation [None]
  - Pustular psoriasis [None]
  - Musculoskeletal disorder [None]
  - Depressed mood [None]
  - Depression [None]
  - Quality of life decreased [None]
  - Palmoplantar pustulosis [None]

NARRATIVE: CASE EVENT DATE: 20220324
